FAERS Safety Report 6185019-5 (Version None)
Quarter: 2009Q2

REPORT INFORMATION
  Report Type: 
  Country: None (occurrence: None)
  Receive Date: 20090511
  Receipt Date: 20090402
  Transmission Date: 20091009
  Serious: No
  Sender: FDA-Public Use
  Company Number: A0776863A

PATIENT
  Age: 85 Year
  Sex: Female

DRUGS (10)
  1. COREG CR [Suspect]
     Indication: CARDIOPULMONARY FAILURE
     Dosage: 40MG PER DAY
     Route: 048
  2. AMLODIPINE [Suspect]
     Indication: CARDIOPULMONARY FAILURE
     Dosage: 5MG PER DAY
     Route: 048
  3. FUROSEMIDE [Suspect]
     Indication: CARDIOPULMONARY FAILURE
     Dosage: 40MG ALTERNATE DAYS
     Route: 048
  4. ISOSORBIDE MONONITRATE [Suspect]
     Indication: CARDIOPULMONARY FAILURE
     Dosage: 30MG PER DAY
     Route: 048
  5. LIPITOR [Concomitant]
  6. LISINOPRIL [Concomitant]
  7. ASPIRIN [Concomitant]
  8. LOVAZA [Concomitant]
  9. CALCIUM [Concomitant]
  10. VITAMINS [Concomitant]

REACTIONS (1)
  - FATIGUE [None]
